FAERS Safety Report 21101079 (Version 1)
Quarter: 2022Q3

REPORT INFORMATION
  Report Type: Other
  Country: MX (occurrence: MX)
  Receive Date: 20220719
  Receipt Date: 20220719
  Transmission Date: 20221027
  Serious: Yes (Death, Life-Threatening, Hospitalization, Other)
  Sender: FDA-Public Use
  Company Number: MX-DENTSPLY-2022SCDP000187

PATIENT
  Age: 60 Year
  Sex: Male
  Weight: 58 kg

DRUGS (2)
  1. LIDOCAINE [Suspect]
     Active Substance: LIDOCAINE
     Indication: Nerve block
     Dosage: 800 MILLIGRAM TOTAL 2 % LIDOCAINE
  2. METFORMIN [Concomitant]
     Active Substance: METFORMIN HYDROCHLORIDE
     Indication: Diabetes mellitus
     Dosage: UNK

REACTIONS (11)
  - Local anaesthetic systemic toxicity [Fatal]
  - Hypoxia [Fatal]
  - Bradycardia [Fatal]
  - Unresponsive to stimuli [Fatal]
  - Altered state of consciousness [Fatal]
  - Hypotension [Fatal]
  - Cardiac arrest [Fatal]
  - Device malfunction [Fatal]
  - Paraesthesia [Recovered/Resolved]
  - Stress [Recovered/Resolved]
  - Nervousness [Recovered/Resolved]
